FAERS Safety Report 7522326-5 (Version None)
Quarter: 2011Q2

REPORT INFORMATION
  Report Type: 
  Country: None (occurrence: None)
  Receive Date: 20110603
  Receipt Date: 20110519
  Transmission Date: 20111010
  Serious: Yes (Hospitalization)
  Sender: FDA-Public Use
  Company Number: PHHY2011US26028

PATIENT
  Sex: Female

DRUGS (3)
  1. GLEEVEC [Suspect]
     Dosage: 400 MG, DAILY
     Route: 048
  2. GLEEVEC [Suspect]
     Dosage: 200 MG, DAILY
     Route: 048
     Dates: start: 20110329
  3. COUMADIN [Concomitant]

REACTIONS (4)
  - RENAL FAILURE [None]
  - SUBDURAL HAEMATOMA [None]
  - DEEP VEIN THROMBOSIS [None]
  - HAEMORRHAGE [None]
